FAERS Safety Report 10873793 (Version 1)
Quarter: 2015Q1

REPORT INFORMATION
  Report Type: Spontaneous
  Country: IN (occurrence: None)
  Receive Date: 20150224
  Receipt Date: 20150224
  Transmission Date: 20150721
  Serious: Yes (Hospitalization)
  Sender: FDA-Public Use
  Company Number: IN-ZYDUS-006798

PATIENT
  Age: 71 Year
  Sex: Female

DRUGS (1)
  1. AMIODARONE (AMIODARONE) [Suspect]
     Active Substance: AMIODARONE
     Indication: ATRIAL FIBRILLATION

REACTIONS (11)
  - Catatonia [None]
  - Decreased interest [None]
  - Anhedonia [None]
  - Fatigue [None]
  - Apathy [None]
  - Mental status changes [None]
  - Psychomotor retardation [None]
  - Decreased appetite [None]
  - Nausea [None]
  - Insomnia [None]
  - Depression [None]
